FAERS Safety Report 18489047 (Version 1)
Quarter: 2020Q4

REPORT INFORMATION
  Report Type: Spontaneous
  Country: AR (occurrence: AR)
  Receive Date: 20201111
  Receipt Date: 20201111
  Transmission Date: 20210114
  Serious: Yes (Hospitalization, Other)
  Sender: FDA-Public Use
  Company Number: AR-AMGEN-ARGSP2020127530

PATIENT
  Age: 43 Year
  Sex: Female

DRUGS (1)
  1. ENBREL [Suspect]
     Active Substance: ETANERCEPT
     Indication: RHEUMATOID ARTHRITIS
     Dosage: 50 MG, WEEKLY(1 WEEKLY DOSE)
     Route: 065
     Dates: start: 20150127

REACTIONS (2)
  - Product dispensing error [Unknown]
  - Tuberculosis [Recovered/Resolved]

NARRATIVE: CASE EVENT DATE: 202001
